FAERS Safety Report 5480598-5 (Version None)
Quarter: 2007Q4

REPORT INFORMATION
  Report Type: 
  Country: None (occurrence: None)
  Receive Date: 20071009
  Receipt Date: 20070929
  Transmission Date: 20080405
  Serious: Yes (Other)
  Sender: FDA-Public Use
  Company Number: CA-ABBOTT-07P-028-0415610-00

PATIENT
  Sex: Female
  Weight: 47.67 kg

DRUGS (8)
  1. HUMIRA [Suspect]
     Indication: ARTHRITIS
     Route: 058
     Dates: start: 20070810
  2. LEVOTHYROXINE SODIUM [Concomitant]
     Indication: DRUG USE FOR UNKNOWN INDICATION
     Route: 048
  3. MULTI-VITAMIN [Concomitant]
     Indication: DRUG USE FOR UNKNOWN INDICATION
     Route: 048
  4. COLAGEN [Concomitant]
     Indication: DRUG USE FOR UNKNOWN INDICATION
  5. COOL-B 50 [Concomitant]
     Indication: DRUG USE FOR UNKNOWN INDICATION
  6. BAM-BU [Concomitant]
     Indication: DRUG USE FOR UNKNOWN INDICATION
  7. OSEPIA [Concomitant]
     Indication: DRUG USE FOR UNKNOWN INDICATION
  8. PARACETAMOL [Concomitant]
     Indication: DRUG USE FOR UNKNOWN INDICATION
     Route: 048

REACTIONS (4)
  - CHILLS [None]
  - ENDODONTIC PROCEDURE [None]
  - PHARYNGOLARYNGEAL PAIN [None]
  - RHEUMATOID ARTHRITIS [None]
